FAERS Safety Report 5158940-4 (Version None)
Quarter: 2006Q4

REPORT INFORMATION
  Report Type: 
  Country: None (occurrence: None)
  Receive Date: 20061117
  Receipt Date: 20061024
  Transmission Date: 20070319
  Serious: Yes (Death, Hospitalization)
  Sender: FDA-Public Use
  Company Number: DSA_28910_2006

PATIENT
  Age: 24 Month
  Sex: Male

DRUGS (1)
  1. NIFEDIPINE LA [Suspect]
     Dosage: DF PO
     Route: 048

REACTIONS (9)
  - ACCIDENTAL DRUG INTAKE BY CHILD [None]
  - BLOOD POTASSIUM DECREASED [None]
  - BLOOD PRESSURE FLUCTUATION [None]
  - BRADYCARDIA [None]
  - CARDIAC ARREST [None]
  - HYPERGLYCAEMIA [None]
  - RESPIRATORY RATE INCREASED [None]
  - TACHYCARDIA [None]
  - VENTRICULAR FIBRILLATION [None]
